FAERS Safety Report 9858770 (Version 1)
Quarter: 2014Q1

REPORT INFORMATION
  Report Type: Spontaneous
  Country: US (occurrence: None)
  Receive Date: 20140130
  Receipt Date: 20140130
  Transmission Date: 20141002
  Serious: Yes (Hospitalization)
  Sender: FDA-Public Use
  Company Number: None

PATIENT
  Age: 59 Year
  Sex: Male

DRUGS (9)
  1. CYCLOPHOSPHAMIDE [Suspect]
     Route: 048
     Dates: start: 20130715, end: 20140129
  2. MORPHINE [Concomitant]
  3. LORAZEPAM [Concomitant]
  4. ONDANSETRON [Concomitant]
  5. SOMA [Concomitant]
  6. DEXAMETHASONE [Concomitant]
  7. DRONABINOL [Concomitant]
  8. GABAPENTIN [Concomitant]
  9. TRIAMCINOLONE CREAM [Concomitant]

REACTIONS (3)
  - Abdominal pain upper [None]
  - Beta haemolytic streptococcal infection [None]
  - Back pain [None]
